FAERS Safety Report 9171419 (Version 1)
Quarter: 2013Q1

REPORT INFORMATION
  Report Type: Spontaneous
  Country: US (occurrence: None)
  Receive Date: 20130318
  Receipt Date: 20130318
  Transmission Date: 20140127
  Serious: Yes (Other)
  Sender: FDA-Public Use
  Company Number: None

PATIENT
  Sex: Female

DRUGS (1)
  1. LISTERINE TOTAL CARE ZERO [Suspect]

REACTIONS (3)
  - Loss of consciousness [None]
  - Fall [None]
  - Loss of consciousness [None]
